FAERS Safety Report 5752389-9 (Version None)
Quarter: 2008Q2

REPORT INFORMATION
  Report Type: 
  Country: None (occurrence: None)
  Receive Date: 20080529
  Receipt Date: 20080523
  Transmission Date: 20081010
  Serious: Yes (Life-Threatening, Hospitalization, Disabling, Other)
  Sender: FDA-Public Use
  Company Number: A0729425A

PATIENT
  Sex: Female
  Weight: 56.8 kg

DRUGS (3)
  1. ARIXTRA [Suspect]
     Dosage: 10MG PER DAY
     Route: 058
  2. PLAVIX [Concomitant]
  3. ASPIRIN [Concomitant]

REACTIONS (3)
  - CEREBROVASCULAR ACCIDENT [None]
  - COAGULOPATHY [None]
  - HAEMORRHAGE [None]
